FAERS Safety Report 12769200 (Version 1)
Quarter: 2016Q3

REPORT INFORMATION
  Report Type: Spontaneous
  Country: RU (occurrence: RU)
  Receive Date: 20160921
  Receipt Date: 20160921
  Transmission Date: 20161109
  Serious: Yes (Hospitalization)
  Sender: FDA-Public Use
  Company Number: RU-ASTRAZENECA-2016SE98357

PATIENT
  Age: 57 Year
  Sex: Female
  Weight: 84 kg

DRUGS (12)
  1. BRILINTA [Suspect]
     Active Substance: TICAGRELOR
     Indication: MYOCARDIAL INFARCTION
     Route: 048
     Dates: start: 201511
  2. VALSARTAN. [Concomitant]
     Active Substance: VALSARTAN
  3. ATORVASTATIN [Concomitant]
     Active Substance: ATORVASTATIN
  4. INDAPAMIDE. [Concomitant]
     Active Substance: INDAPAMIDE
  5. RANOLAZINE [Concomitant]
     Active Substance: RANOLAZINE
  6. METOPROLOL. [Concomitant]
     Active Substance: METOPROLOL
  7. GERAXIN [Concomitant]
  8. BRILINTA [Suspect]
     Active Substance: TICAGRELOR
     Indication: STENT PLACEMENT
     Route: 048
     Dates: start: 201511
  9. ENALALIN [Concomitant]
  10. MOXONIDINE [Concomitant]
     Active Substance: MOXONIDINE
  11. BRILINTA [Suspect]
     Active Substance: TICAGRELOR
     Indication: MYOCARDIAL INFARCTION
     Route: 048
     Dates: start: 20150319, end: 201510
  12. BRILINTA [Suspect]
     Active Substance: TICAGRELOR
     Indication: STENT PLACEMENT
     Route: 048
     Dates: start: 20150319, end: 201510

REACTIONS (2)
  - Contusion [Not Recovered/Not Resolved]
  - Vascular occlusion [Unknown]

NARRATIVE: CASE EVENT DATE: 201504
